FAERS Safety Report 11717927 (Version 1)
Quarter: 2015Q4

REPORT INFORMATION
  Report Type: Spontaneous
  Country: US (occurrence: US)
  Receive Date: 20151110
  Receipt Date: 20151110
  Transmission Date: 20160304
  Serious: No
  Sender: FDA-Public Use
  Company Number: PHEH2015US023056

PATIENT
  Age: 57 Year
  Sex: Male

DRUGS (1)
  1. MEKINIST [Suspect]
     Active Substance: TRAMETINIB DIMETHYL SULFOXIDE
     Indication: MALIGNANT MELANOMA
     Dosage: 1 DF, QD (1 HR BEFORE OR 2 HRS AFTER FOOD)
     Route: 048
     Dates: start: 20151030

REACTIONS (4)
  - Influenza like illness [Unknown]
  - Pain [Unknown]
  - Blood glucose decreased [Unknown]
  - Pyrexia [Unknown]
